FAERS Safety Report 6431718-7 (Version None)
Quarter: 2009Q4

REPORT INFORMATION
  Report Type: 
  Country: None (occurrence: None)
  Receive Date: 20091103
  Receipt Date: 20091019
  Transmission Date: 20100525
  Serious: Yes (Life-Threatening)
  Sender: FDA-Public Use
  Company Number: 02100-JPN-07-0286

PATIENT
  Age: 68 Year
  Sex: Male
  Weight: 56.5 kg

DRUGS (6)
  1. PLETAL [Suspect]
     Indication: CEREBRAL INFARCTION
     Dosage: 81 MG, QD ORAL
     Route: 048
     Dates: start: 20060211, end: 20070607
  2. DIOVAN (VALSARATN) [Concomitant]
  3. AMLDOIN (AMLODIPINE BESILATE) [Concomitant]
  4. SELBEX (TEPRENONE) [Concomitant]
  5. NEW LACTONE A (BIFIDUS/FAECALIS/LACTOBACILLUS ACIDOPHILUS) [Concomitant]
  6. SEIROGAN (GLYCYRRHIZA EXTRACT, CREOSOTE, HERBAL, EXTRACTS NOS) [Concomitant]

REACTIONS (4)
  - ANAEMIA [None]
  - LUNG NEOPLASM MALIGNANT [None]
  - PLEURAL FIBROSIS [None]
  - WHITE BLOOD CELL COUNT DECREASED [None]
